FAERS Safety Report 5910090-2 (Version None)
Quarter: 2008Q4

REPORT INFORMATION
  Report Type: 
  Country: None (occurrence: None)
  Receive Date: 20081007
  Receipt Date: 20070907
  Transmission Date: 20090506
  Serious: No
  Sender: FDA-Public Use
  Company Number: US-ASTRAZENECA-2007UW21253

PATIENT
  Age: 76 Year
  Sex: Female
  Weight: 68 kg

DRUGS (6)
  1. ARIMIDEX [Suspect]
     Indication: BREAST CANCER
     Route: 048
  2. LORAZEPAM [Concomitant]
  3. IBUPROFEN [Concomitant]
  4. FOSAMAX [Concomitant]
  5. NAPROSYN [Concomitant]
  6. SIMVASTATIN [Concomitant]

REACTIONS (9)
  - ALOPECIA [None]
  - ARTHRALGIA [None]
  - BLOOD CHOLESTEROL INCREASED [None]
  - BLOOD PRESSURE INCREASED [None]
  - BODY HEIGHT DECREASED [None]
  - BONE PAIN [None]
  - INSOMNIA [None]
  - SENSATION OF HEAVINESS [None]
  - SENSORY DISTURBANCE [None]
